FAERS Safety Report 9472386 (Version 2)
Quarter: 2013Q4

REPORT INFORMATION
  Report Type: Report from Study
  Country: FR (occurrence: FR)
  Receive Date: 20130823
  Receipt Date: 20131016
  Transmission Date: 20140711
  Serious: Yes (Death)
  Sender: FDA-Public Use
  Company Number: FR-PFIZER INC-2013241266

PATIENT
  Age: 65 Year
  Sex: Male
  Weight: 71 kg

DRUGS (10)
  1. CRIZOTINIB [Suspect]
     Indication: NEOPLASM MALIGNANT
     Dosage: UNK
     Dates: start: 20120928, end: 20121019
  2. MIANSERIN [Concomitant]
  3. LYRICA [Concomitant]
  4. OXYNORM [Concomitant]
  5. PREDNISOLONE [Concomitant]
  6. PARIET [Concomitant]
  7. NOVORAPID [Concomitant]
  8. RAMIPRIL [Concomitant]
  9. CANDESARTAN [Concomitant]
  10. GLICLAZIDE [Concomitant]

REACTIONS (2)
  - Disease progression [Fatal]
  - Neoplasm malignant [Fatal]
